FAERS Safety Report 8980147 (Version 1)
Quarter: 2012Q4

REPORT INFORMATION
  Report Type: 
  Country: US (occurrence: US)
  Receive Date: 20121221
  Receipt Date: 20121221
  Transmission Date: 20130627
  Serious: Yes (Other)
  Sender: FDA-Public Use
  Company Number: US-BAYER-2012-133318

PATIENT
  Age: 20 Year
  Sex: Male
  Weight: 108.84 kg

DRUGS (2)
  1. ALKA-SELTZER PLUS COLD + COUGH [Suspect]
     Indication: COUGH
     Dosage: 2 DF, ONCE
     Route: 048
     Dates: start: 20121214, end: 20121214
  2. ALKA-SELTZER PLUS COLD + COUGH [Suspect]
     Indication: RUNNY NOSE

REACTIONS (5)
  - Deafness [Not Recovered/Not Resolved]
  - Epistaxis [Recovered/Resolved]
  - Tinnitus [Not Recovered/Not Resolved]
  - Abdominal pain upper [Not Recovered/Not Resolved]
  - Headache [Not Recovered/Not Resolved]
